FAERS Safety Report 8622223-8 (Version None)
Quarter: 2012Q3

REPORT INFORMATION
  Report Type: 
  Country: None (occurrence: None)
  Receive Date: 20120827
  Receipt Date: 20120822
  Transmission Date: 20120928
  Serious: Yes (Other)
  Sender: FDA-Public Use
  Company Number: US-AMGEN-USASP2012045332

PATIENT
  Age: 52 Year

DRUGS (5)
  1. XGEVA [Suspect]
     Indication: PROPHYLAXIS
  2. VITAMIN D                          /00318501/ [Concomitant]
     Indication: PROSTATE CANCER METASTATIC
  3. VACCINES [Concomitant]
     Indication: PROSTATE CANCER
     Dosage: UNK UNK, QMO
     Route: 058
     Dates: start: 20120213, end: 20120708
  4. XGEVA [Suspect]
     Indication: PROSTATE CANCER METASTATIC
     Dosage: 120 MG, Q4WK
     Route: 058
     Dates: start: 20111230, end: 20120605
  5. CALCIUM [Concomitant]
     Indication: PROSTATE CANCER METASTATIC

REACTIONS (2)
  - PROSTATE CANCER [None]
  - OSTEONECROSIS OF JAW [None]
